FAERS Safety Report 8995048 (Version 2)
Quarter: 2013Q1

REPORT INFORMATION
  Report Type: Spontaneous
  Country: IT (occurrence: IT)
  Receive Date: 20130102
  Receipt Date: 20130124
  Transmission Date: 20140127
  Serious: Yes (Hospitalization)
  Sender: FDA-Public Use
  Company Number: IT-TEVA-377509ISR

PATIENT
  Age: 60 Year
  Sex: Female

DRUGS (6)
  1. METOTRESSATO TEVA [Suspect]
     Indication: NON-HODGKIN^S LYMPHOMA
     Route: 042
     Dates: start: 20120204, end: 20120204
  2. ENDOXAN BAXTER [Concomitant]
     Indication: NON-HODGKIN^S LYMPHOMA
     Dosage: 200 MG/M2 DAILY;
     Route: 042
     Dates: start: 20120128, end: 20120201
  3. VINCRISTINA PFIZER [Concomitant]
     Indication: NON-HODGKIN^S LYMPHOMA
     Dosage: 1.5 MG/M2 DAILY; 2MG/2ML
     Route: 042
     Dates: start: 20120204, end: 20120204
  4. HOLOXAN [Concomitant]
     Indication: NON-HODGKIN^S LYMPHOMA
     Dosage: 800 MG/M2 DAILY;
     Route: 042
     Dates: start: 20120204, end: 20120208
  5. ETOPOSIDE TEVA [Concomitant]
     Indication: NON-HODGKIN^S LYMPHOMA
     Dosage: 100 MG/M2 DAILY;
     Route: 042
     Dates: start: 20120207, end: 20120208
  6. ARACYTIN [Concomitant]
     Indication: NON-HODGKIN^S LYMPHOMA
     Dosage: 300 MG/M2 DAILY;
     Route: 042
     Dates: start: 20120207, end: 20120208

REACTIONS (1)
  - Stomatitis [Recovered/Resolved]
